FAERS Safety Report 20319194 (Version 1)
Quarter: 2022Q1

REPORT INFORMATION
  Report Type: Spontaneous
  Country: US (occurrence: None)
  Receive Date: 20220110
  Receipt Date: 20220110
  Transmission Date: 20220423
  Serious: Yes (Other)
  Sender: FDA-Public Use
  Company Number: None

PATIENT
  Sex: Male

DRUGS (1)
  1. SEVELAMER [Suspect]
     Active Substance: SEVELAMER

REACTIONS (2)
  - Drug intolerance [None]
  - Abdominal discomfort [None]
